FAERS Safety Report 22540103 (Version 1)
Quarter: 2023Q2

REPORT INFORMATION
  Report Type: Spontaneous
  Country: US (occurrence: US)
  Receive Date: 20230609
  Receipt Date: 20230609
  Transmission Date: 20230722
  Serious: No
  Sender: FDA-Public Use
  Company Number: US-SPECGX-T202202153

PATIENT
  Sex: Female
  Weight: 73 kg

DRUGS (1)
  1. ACETAMINOPHEN\HYDROCODONE [Suspect]
     Active Substance: ACETAMINOPHEN\HYDROCODONE
     Indication: Analgesic therapy
     Dosage: 4 DOSAGE FORM, QD
     Route: 065
     Dates: start: 20221005

REACTIONS (2)
  - Malaise [Unknown]
  - Drug ineffective [Unknown]
